FAERS Safety Report 7032052-7 (Version None)
Quarter: 2010Q4

REPORT INFORMATION
  Report Type: 
  Country: None (occurrence: None)
  Receive Date: 20101007
  Receipt Date: 20100924
  Transmission Date: 20110411
  Serious: Yes (Hospitalization, Other)
  Sender: FDA-Public Use
  Company Number: US-ELI_LILLY_AND_COMPANY-US201005006626

PATIENT
  Sex: Female
  Weight: 77.098 kg

DRUGS (8)
  1. FORTEO [Suspect]
     Indication: OSTEOPOROSIS
     Dosage: 20 UG, DAILY (1/D)
     Dates: start: 20100201, end: 20100401
  2. FORTEO [Suspect]
     Dosage: 20 UG, DAILY (1/D)
     Dates: start: 20100401
  3. FORTEO [Suspect]
     Dosage: 20 UG, DAILY (1/D)
  4. METOPROLOL TARTRATE [Concomitant]
     Dosage: UNK, DAILY (1/D)
  5. VITAMIN D [Concomitant]
     Dosage: 2000 U, 2/D
  6. CYMBALTA [Concomitant]
     Dosage: UNK, DAILY (1/D)
  7. VICODIN [Concomitant]
     Dosage: UNK, AS NEEDED
  8. TRIAMTERENE [Concomitant]
     Dosage: UNK, DAILY (1/D)

REACTIONS (16)
  - ANKLE FRACTURE [None]
  - BLOOD IRON DECREASED [None]
  - CONSTIPATION [None]
  - CONTUSION [None]
  - DEVICE DISLOCATION [None]
  - FALL [None]
  - HYPOACUSIS [None]
  - INJECTION SITE HAEMATOMA [None]
  - INJECTION SITE PAIN [None]
  - JOINT DISLOCATION [None]
  - LOWER LIMB FRACTURE [None]
  - PAIN [None]
  - PAIN IN EXTREMITY [None]
  - PARAESTHESIA [None]
  - SKIN MASS [None]
  - VISUAL ACUITY REDUCED [None]
